FAERS Safety Report 5874546-3 (Version None)
Quarter: 2008Q3

REPORT INFORMATION
  Report Type: 
  Country: None (occurrence: None)
  Receive Date: 20080909
  Receipt Date: 20080902
  Transmission Date: 20090109
  Serious: Yes (Death, Hospitalization)
  Sender: FDA-Public Use
  Company Number: PHHY2008IN19830

PATIENT
  Age: 18 Year
  Sex: Male

DRUGS (1)
  1. ASUNRA [Suspect]

REACTIONS (2)
  - LIVER INJURY [None]
  - SWELLING [None]
